FAERS Safety Report 8794925 (Version 2)
Quarter: 2015Q2

REPORT INFORMATION
  Report Type: Report from Study
  Country: US (occurrence: US)
  Receive Date: 20120917
  Receipt Date: 20150408
  Transmission Date: 20150821
  Serious: Yes (Death, Hospitalization)
  Sender: FDA-Public Use
  Company Number: US-ROCHE-1128233

PATIENT
  Age: 63 Year
  Sex: Male
  Weight: 91.71 kg

DRUGS (13)
  1. PALONOSETRON HYDROCHLORIDE [Concomitant]
     Active Substance: PALONOSETRON HYDROCHLORIDE
     Dosage: 0.25 MG/5ML?THERAPY DATES: 20/OCT/2008, 03/NOV/2008, 17/NOV/2008, 01/DEC/2008,  15/DEC/2008, 05/JAN/
     Route: 042
  2. DECADRON [Concomitant]
     Active Substance: DEXAMETHASONE
     Route: 042
  3. ATROPINE SULFATE. [Concomitant]
     Active Substance: ATROPINE SULFATE
     Dosage: 1 MG/ML?THERAPY DATES: 20/OCT/2008, 03/NOV/2008, 17/NOV/2008, 01/DEC/2008,  15/DEC/2008, 05/JAN/2009
     Route: 065
  4. NORMAL SALINE [Concomitant]
     Active Substance: SODIUM CHLORIDE
  5. CEFTRIAXONE SODIUM. [Concomitant]
     Active Substance: CEFTRIAXONE SODIUM
     Dosage: IN NORMAL SALINE
     Route: 065
     Dates: start: 20090317
  6. AVASTIN [Suspect]
     Active Substance: BEVACIZUMAB
     Indication: BRAIN NEOPLASM MALIGNANT
     Dosage: AT 10 MG/M2 OF 25 MG/ML IN NORMAL SALINE 100 ML?THERAPY DATES: 20/OCT/2008, 03/NOV/2008, 17/NOV/2008
     Route: 042
     Dates: start: 20080922
  7. AVASTIN [Suspect]
     Active Substance: BEVACIZUMAB
     Dosage: AT 10 MG/KG OF 25 MG/ML IN NORMAL SALINE 100 ML?THERAPY DATES: 01/DEC/2008,  15/DEC/2008, 05/JAN/200
     Route: 042
  8. CPT-11 [Concomitant]
     Active Substance: IRINOTECAN
     Dosage: AT 125 MG/M2?THERAPY DATES: 20/OCT/2008, 03/NOV/2008, 17/NOV/2008, 01/DEC/2008,  15/DEC/2008, 05/JAN
     Route: 042
  9. LORAZEPAM. [Concomitant]
     Active Substance: LORAZEPAM
     Dosage: THERAPY DATES: 20/OCT/2008, 03/NOV/2008, 17/NOV/2008, 01/DEC/2008,  15/DEC/2008, 05/JAN/2009, 19/JAN
     Route: 042
  10. DIPHENHYDRAMINE HCL [Concomitant]
     Active Substance: DIPHENHYDRAMINE HYDROCHLORIDE
     Dosage: 50 MG/ML IN NORMAL SALINE?THERAPY DATES: 20/OCT/2008, 03/NOV/2008, 17/NOV/2008, 01/DEC/2008,  15/DEC
     Route: 042
  11. FLULAVAL [Concomitant]
     Dosage: THERAPY DATES: 20/OCT/2008
     Route: 030
  12. DEXAMETHASONE SODIUM PHOSPHATE. [Concomitant]
     Active Substance: DEXAMETHASONE SODIUM PHOSPHATE
     Dosage: THERAPY DATES: 20/OCT/2008, 03/NOV/2008, 17/NOV/2008, 01/DEC/2008,  15/DEC/2008, 05/JAN/2009, 19/JAN
     Route: 065
  13. ACETAMINOPHEN. [Concomitant]
     Active Substance: ACETAMINOPHEN
     Dosage: THERAPY DATES: 20/OCT/2008, 03/NOV/2008, 17/NOV/2008, 01/DEC/2008,  15/DEC/2008, 05/JAN/2009, 19/JAN
     Route: 048

REACTIONS (26)
  - Infection [Unknown]
  - Peritumoural oedema [Unknown]
  - Repetitive speech [Unknown]
  - Malaise [Unknown]
  - Amnesia [Unknown]
  - Constipation [Unknown]
  - Tremor [Unknown]
  - Gait disturbance [Unknown]
  - Dry eye [Unknown]
  - Skin hyperpigmentation [Unknown]
  - Eye pruritus [Unknown]
  - Hyperglycaemia [Unknown]
  - Hypersomnia [Unknown]
  - Eructation [Unknown]
  - Fall [Unknown]
  - Ear pain [Recovered/Resolved]
  - Somnolence [Unknown]
  - Death [Fatal]
  - Visual field defect [Unknown]
  - Nail discolouration [Unknown]
  - Pyrexia [Unknown]
  - Chronic sinusitis [Unknown]
  - Tumour necrosis [Unknown]
  - Micturition urgency [Unknown]
  - Joint range of motion decreased [Unknown]
  - Hemiparesis [Unknown]

NARRATIVE: CASE EVENT DATE: 20090601
